FAERS Safety Report 9452773 (Version 1)
Quarter: 2013Q3

REPORT INFORMATION
  Report Type: Spontaneous
  Country: US (occurrence: None)
  Receive Date: 20130807
  Receipt Date: 20130807
  Transmission Date: 20140515
  Serious: Yes (Hospitalization)
  Sender: FDA-Public Use
  Company Number: IMP_06790_2013

PATIENT
  Age: 69 Year
  Sex: Male

DRUGS (1)
  1. CARBIDOPA-LEVODOPA-B [Suspect]
     Dosage: (DF [25/100 MG])

REACTIONS (5)
  - Nausea [None]
  - Vomiting [None]
  - Dehydration [None]
  - Intestinal mass [None]
  - Catecholamines urine increased [None]
